FAERS Safety Report 6574377-5 (Version None)
Quarter: 2010Q1

REPORT INFORMATION
  Report Type: 
  Country: None (occurrence: None)
  Receive Date: 20100208
  Receipt Date: 20100105
  Transmission Date: 20100710
  Serious: Yes (Other)
  Sender: FDA-Public Use
  Company Number: JP-MERCK-1001USA00410

PATIENT
  Age: 74 Year
  Sex: Female

DRUGS (6)
  1. PEPCID [Suspect]
     Route: 048
  2. CARBAMAZEPINE [Suspect]
     Route: 048
     Dates: start: 20090721
  3. EPINASTINE HYDROCHLORIDE [Concomitant]
     Route: 065
  4. CANDESARTAN CILEXETIL [Concomitant]
     Route: 065
  5. TEMOCAPRIL HYDROCHLORIDE [Concomitant]
     Route: 065
  6. MEXILETINE HYDROCHLORIDE [Concomitant]
     Route: 048
     Dates: start: 20090721

REACTIONS (3)
  - ALTERED STATE OF CONSCIOUSNESS [None]
  - FALL [None]
  - SUBDURAL HAEMORRHAGE [None]
